FAERS Safety Report 17040516 (Version 6)
Quarter: 2021Q1

REPORT INFORMATION
  Report Type: Other
  Country: CN (occurrence: CN)
  Receive Date: 20191117
  Receipt Date: 20210122
  Transmission Date: 20210419
  Serious: Yes (Hospitalization, Other)
  Sender: FDA-Public Use
  Company Number: CN-ROCHE-2271073

PATIENT
  Age: 57 Year
  Sex: Female
  Weight: 60 kg

DRUGS (2)
  1. AVASTIN [Suspect]
     Active Substance: BEVACIZUMAB
     Indication: COLON CANCER
     Route: 041
     Dates: start: 20160720, end: 20191001
  2. AVASTIN [Suspect]
     Active Substance: BEVACIZUMAB
     Route: 041
     Dates: start: 20160720, end: 20201223

REACTIONS (10)
  - Asthenia [Unknown]
  - Intestinal obstruction [Unknown]
  - White blood cell count decreased [Unknown]
  - Hernia [Unknown]
  - Myelosuppression [Unknown]
  - Drug resistance [Unknown]
  - Proctalgia [Unknown]
  - Intestinal operation [Unknown]
  - Renal impairment [Unknown]
  - Anal haemorrhage [Recovering/Resolving]

NARRATIVE: CASE EVENT DATE: 20190221
